FAERS Safety Report 5241238-3 (Version None)
Quarter: 2007Q1

REPORT INFORMATION
  Report Type: 
  Country: None (occurrence: None)
  Receive Date: 20070212
  Receipt Date: 20070212
  Transmission Date: 20070707
  Serious: Yes (Other)
  Sender: FDA-Public Use
  Company Number: None

PATIENT
  Age: 24 Year
  Sex: Male
  Weight: 95.709 kg

DRUGS (4)
  1. ASMANEX TWISTHALER [Suspect]
     Indication: ASTHMA
     Dosage: 1 PUFF DAILY INHAL
     Route: 055
     Dates: start: 20060915, end: 20070130
  2. SINGULAIR [Concomitant]
  3. ALLEGRA [Concomitant]
  4. ALBUTEROL [Concomitant]

REACTIONS (7)
  - CHEST PAIN [None]
  - CUSHINGOID [None]
  - EYE SWELLING [None]
  - ORAL CANDIDIASIS [None]
  - PHARYNGOLARYNGEAL PAIN [None]
  - RASH [None]
  - SWELLING FACE [None]
